FAERS Safety Report 7500356-7 (Version None)
Quarter: 2011Q2

REPORT INFORMATION
  Report Type: 
  Country: None (occurrence: None)
  Receive Date: 20110524
  Receipt Date: 20110518
  Transmission Date: 20111010
  Serious: Yes (Other)
  Sender: FDA-Public Use
  Company Number: US-ABBOTT-11P-163-0726830-00

PATIENT
  Sex: Male
  Weight: 77.18 kg

DRUGS (5)
  1. HUMIRA [Suspect]
     Indication: RHEUMATOID ARTHRITIS
     Route: 058
     Dates: start: 20080101, end: 20090101
  2. PRAVASTATIN [Concomitant]
     Indication: BLOOD CHOLESTEROL INCREASED
  3. MELOXICAM [Concomitant]
     Indication: PAIN
  4. HUMIRA [Suspect]
     Route: 058
     Dates: start: 20090101, end: 20110401
  5. ELAVIL [Concomitant]
     Indication: PAIN

REACTIONS (6)
  - STAPHYLOCOCCAL INFECTION [None]
  - ARTHRALGIA [None]
  - FALL [None]
  - ERYTHEMA [None]
  - JOINT SWELLING [None]
  - HERPES ZOSTER [None]
